FAERS Safety Report 7627573-X (Version None)
Quarter: 2011Q3

REPORT INFORMATION
  Report Type: 
  Country: None (occurrence: None)
  Receive Date: 20110721
  Receipt Date: 20110712
  Transmission Date: 20111222
  Serious: Yes (Death, Hospitalization)
  Sender: FDA-Public Use
  Company Number: JP-BAXTER-2011BH023216

PATIENT
  Age: 74 Year
  Sex: Male

DRUGS (16)
  1. NEORAL [Suspect]
     Indication: IDIOPATHIC PULMONARY FIBROSIS
     Route: 048
     Dates: end: 20110313
  2. POLAPREZINC [Concomitant]
     Indication: PROPHYLAXIS
     Route: 048
     Dates: start: 20101214, end: 20110308
  3. PIRFENIDONE [Suspect]
     Indication: IDIOPATHIC PULMONARY FIBROSIS
     Route: 048
     Dates: start: 20090420, end: 20110313
  4. ATORVASTATIN CALCIUM [Concomitant]
     Indication: PRODUCT USED FOR UNKNOWN INDICATION
     Route: 048
     Dates: end: 20110308
  5. CYCLOPHOSPHAMIDE [Suspect]
     Indication: OFF LABEL USE
     Route: 065
     Dates: start: 20101116, end: 20110308
  6. PREDNISOLONE [Suspect]
     Indication: IDIOPATHIC PULMONARY FIBROSIS
     Route: 048
     Dates: end: 20110308
  7. CYCLOPHOSPHAMIDE [Suspect]
     Indication: IDIOPATHIC PULMONARY FIBROSIS
     Route: 065
     Dates: start: 20101116, end: 20110308
  8. ACTONEL [Concomitant]
     Indication: PROPHYLAXIS
     Route: 048
     Dates: end: 20110308
  9. AMLODIPINE [Concomitant]
     Indication: PRODUCT USED FOR UNKNOWN INDICATION
     Route: 048
     Dates: end: 20110308
  10. AMARYL [Concomitant]
     Indication: PRODUCT USED FOR UNKNOWN INDICATION
     Route: 048
     Dates: end: 20110308
  11. BACTRIM [Concomitant]
     Indication: PROPHYLAXIS
     Route: 048
     Dates: end: 20110308
  12. MAGNESIUM SULFATE [Concomitant]
     Indication: PROPHYLAXIS
     Route: 048
     Dates: start: 20091217, end: 20110308
  13. MIYA-BM [Concomitant]
     Indication: PROPHYLAXIS
     Route: 048
     Dates: start: 20091021, end: 20091112
  14. FAMOTIDINE [Concomitant]
     Indication: PROPHYLAXIS
     Route: 048
     Dates: end: 20100223
  15. RABEPRAZOLE SODIUM [Concomitant]
     Indication: PROPHYLAXIS
     Route: 048
     Dates: start: 20100224, end: 20110312
  16. PIOGLITAZONE HYDROCHLORIDE [Concomitant]
     Indication: PRODUCT USED FOR UNKNOWN INDICATION
     Route: 048
     Dates: end: 20110308

REACTIONS (10)
  - IDIOPATHIC PULMONARY FIBROSIS [None]
  - PNEUMONIA [None]
  - HERPES ZOSTER [None]
  - UPPER RESPIRATORY TRACT INFECTION [None]
  - ANXIETY [None]
  - CARDIAC FAILURE ACUTE [None]
  - WHITE BLOOD CELL COUNT INCREASED [None]
  - INSOMNIA [None]
  - NEUROGENIC BLADDER [None]
  - C-REACTIVE PROTEIN INCREASED [None]
